FAERS Safety Report 17474496 (Version 1)
Quarter: 2020Q1

REPORT INFORMATION
  Report Type: Report from Study
  Country: TW (occurrence: TW)
  Receive Date: 20200228
  Receipt Date: 20200228
  Transmission Date: 20200409
  Serious: Yes (Other)
  Sender: FDA-Public Use
  Company Number: TW-PFIZER INC-2020086090

PATIENT

DRUGS (5)
  1. RITUXIMAB. [Suspect]
     Active Substance: RITUXIMAB
     Indication: DIFFUSE LARGE B-CELL LYMPHOMA
     Dosage: 375 MG/M2, EVERY 3 WEEKS (ON DAY 1,FOR SIX TO EIGHT PLANNED TREATMENT COURSES)
  2. CYCLOPHOSPHAMIDE. [Suspect]
     Active Substance: CYCLOPHOSPHAMIDE
     Indication: DIFFUSE LARGE B-CELL LYMPHOMA
     Dosage: 750 MG/M2, EVERY 3 WEEKS (ON DAY 2, FOR SIX TO EIGHT PLANNED TREATMENT COURSES)
  3. DOXORUBICIN HCL [Suspect]
     Active Substance: DOXORUBICIN HYDROCHLORIDE
     Indication: DIFFUSE LARGE B-CELL LYMPHOMA
     Dosage: 50 MG/M2, EVERY 3 WEEKS (ON DAY 2, FOR SIX TO EIGHT PLANNED TREATMENT COURSES)
  4. PREDNISOLONE. [Suspect]
     Active Substance: PREDNISOLONE
     Indication: DIFFUSE LARGE B-CELL LYMPHOMA
     Dosage: 40 MG/M2, EVERY 3 WEEKS (FOR FIVE DAYS, FOR SIX TO EIGHT PLANNED TREATMENT COURSES)
  5. VINCRISTINE SULFATE. [Suspect]
     Active Substance: VINCRISTINE SULFATE
     Indication: DIFFUSE LARGE B-CELL LYMPHOMA
     Dosage: 1.4 MG/M2, EVERY 3 WEEKS (UP TO A MAXIMAL DOSE OF 2 MG, ON DAY 2, FOR SIX TO EIGHT PLANNED TREATMENT

REACTIONS (1)
  - Cardiac failure acute [Unknown]
